FAERS Safety Report 8070879-3 (Version None)
Quarter: 2012Q1

REPORT INFORMATION
  Report Type: 
  Country: None (occurrence: None)
  Receive Date: 20120125
  Receipt Date: 20120123
  Transmission Date: 20120608
  Serious: Yes (Hospitalization)
  Sender: FDA-Public Use
  Company Number: IT-ROCHE-1033132

PATIENT
  Sex: Female

DRUGS (4)
  1. VINCRISTINE [Concomitant]
     Route: 042
     Dates: start: 20100804, end: 20100819
  2. DOXORUBICIN HCL [Concomitant]
     Route: 042
     Dates: start: 20100804, end: 20100819
  3. MABTHERA [Suspect]
     Indication: NON-HODGKIN'S LYMPHOMA
     Route: 042
     Dates: start: 20100812, end: 20100819
  4. CYCLOPHOSPHAMIDE [Concomitant]
     Route: 042
     Dates: start: 20100804, end: 20100819

REACTIONS (1)
  - HAEMATEMESIS [None]
